FAERS Safety Report 14163676 (Version 1)
Quarter: 2017Q4

REPORT INFORMATION
  Report Type: Spontaneous
  Country: FR (occurrence: FR)
  Receive Date: 20171107
  Receipt Date: 20171107
  Transmission Date: 20180321
  Serious: Yes (Other)
  Sender: FDA-Public Use
  Company Number: FR-MERCK KGAA-2033371

PATIENT
  Age: 56 Year
  Sex: Female

DRUGS (1)
  1. NOVOTHYROX [Suspect]
     Active Substance: LEVOTHYROXINE SODIUM
     Indication: HYPOTHYROIDISM
     Route: 048
     Dates: start: 20170410, end: 20170912

REACTIONS (21)
  - Abdominal pain upper [None]
  - Night sweats [None]
  - Rash [None]
  - Eczema [None]
  - Nausea [None]
  - Insomnia [None]
  - Hot flush [None]
  - Tachycardia [None]
  - Tremor [None]
  - Oedema peripheral [None]
  - Gastrointestinal motility disorder [None]
  - Amnesia [None]
  - Guttate psoriasis [None]
  - Dry skin [None]
  - Headache [None]
  - Vision blurred [None]
  - Dry eye [None]
  - Irritability [None]
  - Product formulation issue [None]
  - Asthenia [None]
  - Diffuse alopecia [None]

NARRATIVE: CASE EVENT DATE: 201706
